FAERS Safety Report 18975364 (Version 2)
Quarter: 2021Q1

REPORT INFORMATION
  Report Type: Spontaneous
  Country: US (occurrence: US)
  Receive Date: 20210305
  Receipt Date: 20210315
  Transmission Date: 20210420
  Serious: No
  Sender: FDA-Public Use
  Company Number: US-GILEAD-2021-0520007

PATIENT
  Age: 30 Year
  Sex: Male
  Weight: 105.22 kg

DRUGS (2)
  1. TRUVADA [Concomitant]
     Active Substance: EMTRICITABINE\TENOFOVIR DISOPROXIL FUMARATE
     Indication: PROPHYLAXIS AGAINST HIV INFECTION
     Dosage: 200?300
     Route: 048
     Dates: start: 20210226
  2. DESCOVY [Suspect]
     Active Substance: EMTRICITABINE\TENOFOVIR ALAFENAMIDE FUMARATE
     Indication: PROPHYLAXIS AGAINST HIV INFECTION
     Dosage: 200?25
     Route: 048
     Dates: start: 20201015, end: 20210226

REACTIONS (1)
  - Polydipsia [Recovered/Resolved]

NARRATIVE: CASE EVENT DATE: 20201016
